FAERS Safety Report 5174667-7 (Version None)
Quarter: 2006Q4

REPORT INFORMATION
  Report Type: 
  Country: None (occurrence: None)
  Receive Date: 20061214
  Receipt Date: 20060712
  Transmission Date: 20070319
  Serious: Yes (Hospitalization)
  Sender: FDA-Public Use
  Company Number: US-ABBOTT-06P-163-0338072-00

PATIENT
  Sex: Male
  Weight: 88.53 kg

DRUGS (5)
  1. SYNTHROID [Suspect]
     Indication: HYPOTHYROIDISM
     Route: 048
     Dates: start: 19950101, end: 19950101
  2. SYNTHROID [Suspect]
     Route: 048
     Dates: start: 19950101
  3. SYNTHROID [Suspect]
     Route: 048
  4. VITAMIN CAP [Concomitant]
     Indication: VITAMIN SUPPLEMENTATION
  5. IBUPROFEN [Concomitant]
     Indication: PAIN

REACTIONS (9)
  - ANXIETY [None]
  - BLOOD PRESSURE INCREASED [None]
  - DIZZINESS [None]
  - ESCHERICHIA INFECTION [None]
  - FLUSHING [None]
  - FREQUENT BOWEL MOVEMENTS [None]
  - HEART RATE INCREASED [None]
  - HYPERHIDROSIS [None]
  - PROSTATITIS [None]
